FAERS Safety Report 11760001 (Version 1)
Quarter: 2015Q4

REPORT INFORMATION
  Report Type: Spontaneous
  Country: CA (occurrence: CA)
  Receive Date: 20151120
  Receipt Date: 20151120
  Transmission Date: 20160304
  Serious: Yes (Other)
  Sender: FDA-Public Use
  Company Number: CA-TEVA-611099ACC

PATIENT
  Age: 52 Year
  Sex: Male
  Weight: 74 kg

DRUGS (7)
  1. PARIET [Concomitant]
     Active Substance: RABEPRAZOLE SODIUM
  2. RAMIPRIL. [Concomitant]
     Active Substance: RAMIPRIL
  3. CLOPIDOGREL [Suspect]
     Active Substance: CLOPIDOGREL BISULFATE
     Indication: PERIPHERAL VASCULAR DISORDER
  4. CLOPIDOGREL [Suspect]
     Active Substance: CLOPIDOGREL BISULFATE
     Indication: CORONARY ARTERY DISEASE
     Dosage: 75 MILLIGRAM DAILY;
     Route: 048
  5. ENTERIC COATED ASA [Concomitant]
     Active Substance: ASPIRIN
  6. LIPITOR [Concomitant]
     Active Substance: ATORVASTATIN CALCIUM
  7. METOPROLOL [Concomitant]
     Active Substance: METOPROLOL

REACTIONS (4)
  - Product substitution issue [Recovered/Resolved]
  - Angina pectoris [Recovered/Resolved]
  - Peripheral vascular disorder [Recovered/Resolved]
  - Coronary artery disease [Recovered/Resolved]
